FAERS Safety Report 5000080-9 (Version None)
Quarter: 2006Q2

REPORT INFORMATION
  Report Type: 
  Country: None (occurrence: None)
  Receive Date: 20060509
  Receipt Date: 20060428
  Transmission Date: 20061013
  Serious: Yes (Hospitalization)
  Sender: FDA-Public Use
  Company Number: MEDI-0004367

PATIENT
  Age: 6 Month
  Weight: 6.55 kg

DRUGS (6)
  1. SYNAGIS [Suspect]
     Indication: ANTIVIRAL PROPHYLAXIS
     Dosage: 100 + 1 + 50 + 65 + 85 MG, 1 IN 30 D, INTRAMUSCULAR
     Route: 030
     Dates: start: 20051018, end: 20060223
  2. SYNAGIS [Suspect]
     Indication: ANTIVIRAL PROPHYLAXIS
     Dosage: 100 + 1 + 50 + 65 + 85 MG, 1 IN 30 D, INTRAMUSCULAR
     Route: 030
     Dates: start: 20051018
  3. SYNAGIS [Suspect]
     Indication: ANTIVIRAL PROPHYLAXIS
     Dosage: 100 + 1 + 50 + 65 + 85 MG, 1 IN 30 D, INTRAMUSCULAR
     Route: 030
     Dates: start: 20051121
  4. SYNAGIS [Suspect]
     Indication: ANTIVIRAL PROPHYLAXIS
     Dosage: 100 + 1 + 50 + 65 + 85 MG, 1 IN 30 D, INTRAMUSCULAR
     Route: 030
     Dates: start: 20051216
  5. SYNAGIS [Suspect]
     Indication: ANTIVIRAL PROPHYLAXIS
     Dosage: 100 + 1 + 50 + 65 + 85 MG, 1 IN 30 D, INTRAMUSCULAR
     Route: 030
     Dates: start: 20060126
  6. SALBUTAMOL (SALBUTAMOL) [Concomitant]

REACTIONS (1)
  - BRONCHIOLITIS [None]
